FAERS Safety Report 5718443-2 (Version None)
Quarter: 2008Q2

REPORT INFORMATION
  Report Type: 
  Country: None (occurrence: None)
  Receive Date: 20080425
  Receipt Date: 20080414
  Transmission Date: 20081010
  Serious: Yes (Hospitalization)
  Sender: FDA-Public Use
  Company Number: NO-JNJFOC-20080403905

PATIENT
  Age: 39 Year
  Sex: Female

DRUGS (6)
  1. TOPIRAMATE [Suspect]
     Route: 065
  2. TOPIRAMATE [Suspect]
     Route: 065
  3. TOPIRAMATE [Suspect]
     Route: 065
  4. TOPIRAMATE [Suspect]
     Route: 065
  5. TOPIRAMATE [Suspect]
     Indication: COMPLEX PARTIAL SEIZURES
     Route: 065
  6. CARBAMAZEPINE [Interacting]
     Indication: COMPLEX PARTIAL SEIZURES
     Route: 065

REACTIONS (6)
  - ACUTE HEPATIC FAILURE [None]
  - DRUG INTERACTION [None]
  - HEPATIC NECROSIS [None]
  - LIVER TRANSPLANT [None]
  - LOSS OF CONSCIOUSNESS [None]
  - WEIGHT DECREASED [None]
